FAERS Safety Report 18069630 (Version 3)
Quarter: 2020Q3

REPORT INFORMATION
  Report Type: Spontaneous
  Country: US (occurrence: US)
  Receive Date: 20200726
  Receipt Date: 20200909
  Transmission Date: 20201103
  Serious: No
  Sender: FDA-Public Use
  Company Number: US-ASTRAZENECA-2020SE90363

PATIENT
  Age: 68 Year
  Sex: Female
  Weight: 90.7 kg

DRUGS (1)
  1. BYDUREON BCISE [Suspect]
     Active Substance: EXENATIDE
     Indication: DIABETES MELLITUS
     Route: 065

REACTIONS (4)
  - Injection site pain [Unknown]
  - Device issue [Unknown]
  - Needle issue [Unknown]
  - Incorrect dose administered by device [Unknown]
